FAERS Safety Report 5323498-3 (Version None)
Quarter: 2007Q2

REPORT INFORMATION
  Report Type: 
  Country: None (occurrence: None)
  Receive Date: 20070509
  Receipt Date: 20070509
  Transmission Date: 20071010
  Serious: Yes (Other)
  Sender: FDA-Public Use
  Company Number: None

PATIENT
  Age: 57 Year
  Sex: Female
  Weight: 62.5 kg

DRUGS (1)
  1. GAMMAGARD S/D [Suspect]
     Indication: IMMUNODEFICIENCY COMMON VARIABLE
     Dosage: 25 GRAMS  Q 4 WEEKS  IV DRIP
     Route: 041
     Dates: start: 20070507, end: 20070507

REACTIONS (4)
  - ARTHRALGIA [None]
  - CONDITION AGGRAVATED [None]
  - HEADACHE [None]
  - INFUSION RELATED REACTION [None]
